FAERS Safety Report 5689475-8 (Version None)
Quarter: 2008Q1

REPORT INFORMATION
  Report Type: 
  Country: None (occurrence: None)
  Receive Date: 20080331
  Receipt Date: 20080319
  Transmission Date: 20080703
  Serious: Yes (Hospitalization)
  Sender: FDA-Public Use
  Company Number: DE-PFIZER INC-2008025828

PATIENT
  Age: 69 Year
  Sex: Male

DRUGS (8)
  1. LYRICA [Suspect]
     Indication: DIABETIC NEUROPATHY
     Route: 048
  2. INSULIN [Concomitant]
  3. DICLO [Concomitant]
  4. OMEP [Concomitant]
  5. AMLODIPINE [Concomitant]
  6. ALLOPURINOL [Concomitant]
  7. MICARDIS [Concomitant]
  8. DOXAZOSIN [Concomitant]

REACTIONS (3)
  - ABASIA [None]
  - DEPRESSION [None]
  - MYOCLONUS [None]
